FAERS Safety Report 20916286 (Version 2)
Quarter: 2022Q2

REPORT INFORMATION
  Report Type: Report from Study
  Country: US (occurrence: US)
  Receive Date: 20220604
  Receipt Date: 20220616
  Transmission Date: 20220721
  Serious: No
  Sender: FDA-Public Use
  Company Number: US-SANOFI-01128043

PATIENT
  Age: 26 Year
  Sex: Male

DRUGS (1)
  1. DUPIXENT [Suspect]
     Active Substance: DUPILUMAB
     Indication: Eczema
     Dosage: 300 MG, QOW

REACTIONS (6)
  - Skin exfoliation [Not Recovered/Not Resolved]
  - Foreign body in eye [Unknown]
  - Eyelid margin crusting [Not Recovered/Not Resolved]
  - Rebound eczema [Unknown]
  - Eczema eyelids [Not Recovered/Not Resolved]
  - Eyelid bleeding [Not Recovered/Not Resolved]

NARRATIVE: CASE EVENT DATE: 20220601
